FAERS Safety Report 10866945 (Version 1)
Quarter: 2015Q1

REPORT INFORMATION
  Report Type: Spontaneous
  Country: US (occurrence: US)
  Receive Date: 20150225
  Receipt Date: 20150225
  Transmission Date: 20150721
  Serious: No
  Sender: FDA-Public Use
  Company Number: US-BAYER-2015-022891

PATIENT
  Age: 14 Year
  Sex: Female

DRUGS (1)
  1. SKYLA [Suspect]
     Active Substance: LEVONORGESTREL
     Indication: MENSTRUATION IRREGULAR
     Dosage: 14 MCG/24HR, CONT
     Route: 015
     Dates: start: 20150210, end: 20150210

REACTIONS (2)
  - Procedural complication [None]
  - Off label use [None]

NARRATIVE: CASE EVENT DATE: 20150210
